FAERS Safety Report 7347984-X (Version None)
Quarter: 2011Q1

REPORT INFORMATION
  Report Type: 
  Country: None (occurrence: None)
  Receive Date: 20110311
  Receipt Date: 20110225
  Transmission Date: 20110831
  Serious: Yes (Hospitalization)
  Sender: FDA-Public Use
  Company Number: US-JNJFOC-20101108430

PATIENT
  Sex: Female
  Weight: 43.5 kg

DRUGS (4)
  1. REMICADE [Suspect]
     Indication: CROHN'S DISEASE
     Route: 042
  2. CIMZIA [Concomitant]
  3. BUDESONIDE [Concomitant]
  4. PREDNISONE [Concomitant]

REACTIONS (3)
  - ILEAL STENOSIS [None]
  - DRUG INEFFECTIVE [None]
  - CROHN'S DISEASE [None]
